FAERS Safety Report 19487840 (Version 1)
Quarter: 2021Q3

REPORT INFORMATION
  Report Type: Spontaneous
  Country: FR (occurrence: FR)
  Receive Date: 20210702
  Receipt Date: 20210702
  Transmission Date: 20211014
  Serious: Yes (Other)
  Sender: FDA-Public Use
  Company Number: FR-PFIZER INC-2021750713

PATIENT
  Age: 50 Year
  Sex: Female

DRUGS (3)
  1. PREGABALIN. [Suspect]
     Active Substance: PREGABALIN
     Dosage: 600 MG, 1X/DAY (IN TWO INTAKE)
     Route: 048
  2. OXYCONTIN [Suspect]
     Active Substance: OXYCODONE HYDROCHLORIDE
     Dosage: 200 MG, 1X/DAY (IN TWO INTAKE; STRENGTH: 20 MG)
     Route: 048
  3. OXYCONTIN [Suspect]
     Active Substance: OXYCODONE HYDROCHLORIDE
     Dosage: 200 MG, 1X/DAY (IN TWO INTAKE; STRENGTH: 40 MG)
     Route: 048

REACTIONS (1)
  - Drug use disorder [Not Recovered/Not Resolved]
